FAERS Safety Report 9109682 (Version 2)
Quarter: 2013Q1

REPORT INFORMATION
  Report Type: Spontaneous
  Country: US (occurrence: US)
  Receive Date: 20130222
  Receipt Date: 20130313
  Transmission Date: 20140127
  Serious: No
  Sender: FDA-Public Use
  Company Number: US-PFIZER INC-2013064136

PATIENT
  Age: 37 Year
  Sex: Male
  Weight: 74.83 kg

DRUGS (1)
  1. FLECTOR [Suspect]
     Indication: BACK PAIN
     Dosage: UNK, EVERY 12 HOURS
     Dates: start: 201302

REACTIONS (2)
  - Poor quality drug administered [Unknown]
  - Drug ineffective [Unknown]
